FAERS Safety Report 8261929-X (Version None)
Quarter: 2012Q1

REPORT INFORMATION
  Report Type: 
  Country: None (occurrence: None)
  Receive Date: 20120327
  Receipt Date: 20090309
  Transmission Date: 20120608
  Serious: Yes (Other)
  Sender: FDA-Public Use
  Company Number: PHEH2009US02403

PATIENT
  Age: 54 Year
  Sex: Female

DRUGS (14)
  1. PROGRAF [Concomitant]
  2. XALATAN [Concomitant]
  3. NOROXIN [Concomitant]
  4. ASPIRIN [Concomitant]
  5. TIMOLOL MALEATE [Concomitant]
  6. PROTONIX [Concomitant]
  7. PRAVACHOL [Concomitant]
  8. FOSAMAX [Concomitant]
  9. MULTIVITAMIN (VITAMIN NOS) [Concomitant]
  10. MAGNESIUM (MAGNESIUM) [Concomitant]
  11. GLEEVEC [Suspect]
     Indication: CHRONIC MYELOID LEUKAEMIA
     Dosage: 300 MG, QD, ORAL, 100 MG, QD
     Route: 048
     Dates: end: 20090201
  12. GLEEVEC [Suspect]
     Indication: CHRONIC MYELOID LEUKAEMIA
     Dosage: 300 MG, QD, ORAL, 100 MG, QD
     Route: 048
     Dates: start: 20090104
  13. EPIVIR [Concomitant]
  14. MEDROL [Concomitant]

REACTIONS (4)
  - MEAN PLATELET VOLUME DECREASED [None]
  - OEDEMA PERIPHERAL [None]
  - WHITE BLOOD CELL COUNT DECREASED [None]
  - PLATELET COUNT DECREASED [None]
